FAERS Safety Report 8989268 (Version 6)
Quarter: 2013Q2

REPORT INFORMATION
  Report Type: Spontaneous
  Country: US (occurrence: US)
  Receive Date: 20121227
  Receipt Date: 20130506
  Transmission Date: 20140414
  Serious: No
  Sender: FDA-Public Use
  Company Number: US-009507513-1212USA009867

PATIENT
  Age: 34 Year
  Sex: Female
  Weight: 67.57 kg

DRUGS (1)
  1. IMPLANON [Suspect]
     Indication: CONTRACEPTION
     Dosage: UNK
     Route: 059
     Dates: start: 20100608, end: 20130207

REACTIONS (2)
  - Device breakage [Recovered/Resolved]
  - No adverse event [Unknown]
